FAERS Safety Report 5729267-4 (Version None)
Quarter: 2008Q2

REPORT INFORMATION
  Report Type: 
  Country: None (occurrence: None)
  Receive Date: 20080506
  Receipt Date: 20080425
  Transmission Date: 20081010
  Serious: Yes (Other)
  Sender: FDA-Public Use
  Company Number: ES-AMGEN-US241180

PATIENT
  Age: 67 Year
  Sex: Female

DRUGS (3)
  1. ENBREL [Suspect]
     Indication: PSORIASIS
     Route: 058
     Dates: start: 20060201
  2. ENBREL [Suspect]
     Route: 058
  3. ENBREL [Suspect]
     Route: 058
     Dates: end: 20070701

REACTIONS (1)
  - BREAST CANCER [None]
